FAERS Safety Report 5338070-9 (Version None)
Quarter: 2007Q2

REPORT INFORMATION
  Report Type: 
  Country: None (occurrence: None)
  Receive Date: 20070530
  Receipt Date: 20070529
  Transmission Date: 20071010
  Serious: Yes (Life-Threatening, Hospitalization)
  Sender: FDA-Public Use
  Company Number: GB-JNJFOC-20070506398

PATIENT
  Age: 74 Year
  Sex: Female
  Weight: 63.5 kg

DRUGS (6)
  1. RISPERDAL [Suspect]
     Indication: DRUG USE FOR UNKNOWN INDICATION
     Route: 065
  2. DEPIXOL [Suspect]
     Indication: DRUG USE FOR UNKNOWN INDICATION
  3. CHLORPROMAZINE [Concomitant]
     Route: 048
  4. CIPRALEX [Concomitant]
     Route: 048
  5. SENNA [Concomitant]
     Route: 048
  6. TEMAZEPAM [Concomitant]
     Route: 048

REACTIONS (2)
  - PAIN [None]
  - SUICIDAL IDEATION [None]
